FAERS Safety Report 25367680 (Version 1)
Quarter: 2025Q2

REPORT INFORMATION
  Report Type: Spontaneous
  Country: US (occurrence: US)
  Receive Date: 20250528
  Receipt Date: 20250528
  Transmission Date: 20250716
  Serious: Yes (Life-Threatening, Hospitalization, Other)
  Sender: Unknown Manufacturer
  Company Number: US-862174955-ML2025-02549

PATIENT
  Age: 24 Year
  Sex: Female

DRUGS (1)
  1. CAFFEINE [Suspect]
     Active Substance: CAFFEINE
     Indication: Product used for unknown indication

REACTIONS (8)
  - Toxicity to various agents [Recovered/Resolved]
  - Hepatic enzyme increased [Recovered/Resolved]
  - Hyperadrenalism [Recovered/Resolved]
  - Agitation [Recovered/Resolved]
  - Cardiogenic shock [Recovered/Resolved]
  - Lactic acidosis [Recovered/Resolved]
  - Seizure like phenomena [Recovered/Resolved]
  - Intentional overdose [Recovered/Resolved]
